FAERS Safety Report 4512553-3 (Version None)
Quarter: 2004Q4

REPORT INFORMATION
  Report Type: 
  Country: None (occurrence: None)
  Receive Date: 20041129
  Receipt Date: 20041118
  Transmission Date: 20050328
  Serious: Yes (Other)
  Sender: FDA-Public Use
  Company Number: US-MERCK-0411USA03265

PATIENT
  Age: 52 Year
  Sex: Male

DRUGS (1)
  1. COZAAR [Suspect]
     Route: 048

REACTIONS (2)
  - FATIGUE [None]
  - PANCYTOPENIA [None]
